FAERS Safety Report 23408887 (Version 4)
Quarter: 2024Q1

REPORT INFORMATION
  Report Type: Spontaneous
  Country: PT (occurrence: PT)
  Receive Date: 20240117
  Receipt Date: 20240320
  Transmission Date: 20240409
  Serious: Yes (Disabling)
  Sender: FDA-Public Use
  Company Number: PT-ZAMBON SWITZERLAND LTD.-2024-ZAM-PT000003

PATIENT

DRUGS (4)
  1. FOSFOMYCIN TROMETHAMINE [Suspect]
     Active Substance: FOSFOMYCIN TROMETHAMINE
     Indication: Urinary tract infection
     Dosage: 3000 MG, SINGLE, 1 SACHET PER DAY - 2 DAYS, 3 HOURS AFTER A MEAL
     Route: 048
     Dates: start: 20231014, end: 20231015
  2. XANAX [Concomitant]
     Active Substance: ALPRAZOLAM
     Indication: Product used for unknown indication
     Dosage: 0.25 MG
     Route: 048
  3. CANDESARTAN [Concomitant]
     Active Substance: CANDESARTAN
     Indication: Product used for unknown indication
  4. LEVOTHYROXINE SODIUM [Concomitant]
     Active Substance: LEVOTHYROXINE SODIUM
     Indication: Product used for unknown indication
     Dosage: UNK
     Route: 048

REACTIONS (14)
  - Pruritus genital [Recovering/Resolving]
  - Genital burning sensation [Recovering/Resolving]
  - Anorectal discomfort [Recovering/Resolving]
  - Incontinence [Not Recovered/Not Resolved]
  - Genital discharge [Not Recovered/Not Resolved]
  - Gastrointestinal pain [Recovered/Resolved]
  - Genital injury [Recovered/Resolved]
  - Pyrexia [Recovered/Resolved]
  - Dysuria [Recovered/Resolved]
  - Dysuria [Recovering/Resolving]
  - Diarrhoea [Recovered/Resolved]
  - Renal pain [Not Recovered/Not Resolved]
  - Headache [Recovered/Resolved]
  - Overdose [Unknown]

NARRATIVE: CASE EVENT DATE: 20231001
